FAERS Safety Report 18551688 (Version 1)
Quarter: 2020Q4

REPORT INFORMATION
  Report Type: Spontaneous
  Country: US (occurrence: US)
  Receive Date: 20201126
  Receipt Date: 20201126
  Transmission Date: 20210114
  Serious: Yes (Other)
  Sender: FDA-Public Use
  Company Number: US-009507513-2011USA014983

PATIENT
  Age: 53 Year
  Sex: Female

DRUGS (11)
  1. CIPROFLOXACIN HYDROCHLORIDE. [Concomitant]
     Active Substance: CIPROFLOXACIN HYDROCHLORIDE
     Dosage: 1000 MILLIGRAM, QD
     Route: 048
  2. NEXIUM [Suspect]
     Active Substance: ESOMEPRAZOLE MAGNESIUM
     Dosage: 40 MILLIGRAM, QD
     Route: 048
     Dates: start: 20121105
  3. MAGNESIUM OXIDE. [Concomitant]
     Active Substance: MAGNESIUM OXIDE
     Dosage: 800 MILLIGRAM, QD
     Route: 048
     Dates: start: 20120910
  4. ASPIRIN. [Suspect]
     Active Substance: ASPIRIN
     Dosage: 1 DOSAGE FORM, QD
     Route: 048
     Dates: start: 20080424
  5. PRINIVIL [Suspect]
     Active Substance: LISINOPRIL
     Route: 048
  6. GABAPENTIN. [Concomitant]
     Active Substance: GABAPENTIN
     Dosage: 300 MILLIGRAM, QD
     Route: 048
     Dates: start: 20121105
  7. LEXAPRO [Concomitant]
     Active Substance: ESCITALOPRAM OXALATE
     Dosage: 20 MILLIGRAM, QD
     Route: 048
     Dates: start: 20120514
  8. BUMETANIDE. [Concomitant]
     Active Substance: BUMETANIDE
     Dosage: 4 MILLIGRAM, QD
     Route: 048
     Dates: start: 20121105
  9. LABETALOL HYDROCHLORIDE. [Concomitant]
     Active Substance: LABETALOL HYDROCHLORIDE
     Dosage: 600 MILLIGRAM, QD
     Route: 048
  10. CALCIUM ACETATE. [Concomitant]
     Active Substance: CALCIUM ACETATE
     Dosage: 1334 MILLIGRAM, QD
     Route: 048
  11. FERROUS SULFATE. [Concomitant]
     Active Substance: FERROUS SULFATE
     Dosage: 325 (65 FE)MG. THREE TIMES DAILY
     Route: 048

REACTIONS (31)
  - Cellulitis [Unknown]
  - Nephrogenic anaemia [Unknown]
  - Headache [Unknown]
  - Drug hypersensitivity [Unknown]
  - Pulmonary mass [Unknown]
  - Neuralgia [Unknown]
  - Chest pain [Unknown]
  - Hyponatraemia [Unknown]
  - Fatigue [Unknown]
  - Hyperlipidaemia [Unknown]
  - Abdominal pain upper [Unknown]
  - Swollen tongue [Unknown]
  - Congenital cystic kidney disease [Unknown]
  - Chronic kidney disease [Unknown]
  - Overweight [Unknown]
  - Pain [Unknown]
  - Bronchitis [Unknown]
  - Otitis externa [Unknown]
  - Iron deficiency anaemia [Unknown]
  - Pain in extremity [Unknown]
  - Acute sinusitis [Unknown]
  - Otitis media acute [Unknown]
  - Lipoma [Unknown]
  - Diabetes mellitus [Unknown]
  - Haematuria [Unknown]
  - Rectal haemorrhage [Unknown]
  - Hypomagnesaemia [Unknown]
  - Sinusitis [Unknown]
  - Arthralgia [Unknown]
  - Secondary hypertension [Unknown]
  - Hypertension [Unknown]

NARRATIVE: CASE EVENT DATE: 20070221
